FAERS Safety Report 9601943 (Version 1)
Quarter: 2013Q4

REPORT INFORMATION
  Report Type: Spontaneous
  Country: US (occurrence: None)
  Receive Date: 20131004
  Receipt Date: 20131004
  Transmission Date: 20140711
  Serious: Yes (Hospitalization)
  Sender: FDA-Public Use
  Company Number: None

PATIENT
  Age: 52 Year
  Sex: Female
  Weight: 67.5 kg

DRUGS (2)
  1. GEMCITABINE [Suspect]
     Indication: FALLOPIAN TUBE CANCER
     Dosage: 600 MG/M2 WEEKLY 3 OF 4 WKS IV
     Route: 042
     Dates: start: 20130625, end: 20130806
  2. PANITUMUMAB [Suspect]
     Indication: FALLOPIAN TUBE CANCER
     Route: 042
     Dates: start: 20130625, end: 20130813

REACTIONS (4)
  - Small intestinal obstruction [None]
  - Back pain [None]
  - Tachypnoea [None]
  - Tachycardia [None]
